FAERS Safety Report 4780984-2 (Version None)
Quarter: 2005Q3

REPORT INFORMATION
  Report Type: 
  Country: None (occurrence: None)
  Receive Date: 20050928
  Receipt Date: 20050914
  Transmission Date: 20060218
  Serious: Yes (Hospitalization)
  Sender: FDA-Public Use
  Company Number: US-BOEHRINGER INGELHEIM PHARMACEUTICALS, INC.-2005-DE-03715GD

PATIENT
  Age: 3 Year
  Sex: Male

DRUGS (1)
  1. CLONIDINE [Suspect]
     Route: 048

REACTIONS (6)
  - BRADYCARDIA [None]
  - DEPRESSED LEVEL OF CONSCIOUSNESS [None]
  - DRUG TOXICITY [None]
  - HYPOTENSION [None]
  - MIOSIS [None]
  - THERAPY NON-RESPONDER [None]
